FAERS Safety Report 4999976-3 (Version None)
Quarter: 2006Q2

REPORT INFORMATION
  Report Type: 
  Country: None (occurrence: None)
  Receive Date: 20060501
  Receipt Date: 20060418
  Transmission Date: 20061013
  Serious: Yes (Hospitalization)
  Sender: FDA-Public Use
  Company Number: 2005172371

PATIENT
  Age: 24 Year
  Sex: Female

DRUGS (4)
  1. ZITHROMAX [Suspect]
     Indication: TONSILLITIS
     Dosage: ORAL
     Route: 048
     Dates: start: 20051124, end: 20051129
  2. MAXILASE               (AMYLASE) [Suspect]
     Indication: TONSILLITIS
     Dosage: ORAL
     Route: 048
     Dates: start: 20051203, end: 20051203
  3. IBUPROFEN [Suspect]
     Indication: TONSILLITIS
     Dosage: ORAL
     Route: 048
     Dates: start: 20051124, end: 20051129
  4. ELUDRIL (ASCORBIC ACID, CHLORHEXIDINE GLUCONATE, TETRACAINE HYDROCHLOR [Suspect]
     Indication: TONSILLITIS
     Dosage: ORAL
     Route: 048
     Dates: start: 20051124, end: 20051129

REACTIONS (10)
  - APHTHOUS STOMATITIS [None]
  - EPSTEIN-BARR VIRUS ANTIBODY POSITIVE [None]
  - GAMMA-GLUTAMYLTRANSFERASE INCREASED [None]
  - HYPERGLYCAEMIA [None]
  - INFECTIOUS MONONUCLEOSIS [None]
  - NASAL OEDEMA [None]
  - OEDEMA MOUTH [None]
  - RASH MACULO-PAPULAR [None]
  - TONGUE OEDEMA [None]
  - VIRUS SEROLOGY TEST POSITIVE [None]
